FAERS Safety Report 7021469-2 (Version None)
Quarter: 2010Q3

REPORT INFORMATION
  Report Type: 
  Country: None (occurrence: None)
  Receive Date: 20100929
  Receipt Date: 20100927
  Transmission Date: 20110219
  Serious: Yes (Hospitalization, Other)
  Sender: FDA-Public Use
  Company Number: US-ELI_LILLY_AND_COMPANY-US200910005167

PATIENT
  Sex: Female
  Weight: 88.435 kg

DRUGS (16)
  1. BYETTA [Suspect]
     Dosage: 10 UG, 2/D
     Route: 058
     Dates: start: 20060404, end: 20070129
  2. BYETTA [Suspect]
     Dosage: 10 UG, 2/D
     Route: 058
     Dates: end: 20080613
  3. METFORMIN [Concomitant]
     Indication: DIABETES MELLITUS
     Dosage: 500 MG, EACH MORNING
     Dates: end: 20070129
  4. METFORMIN [Concomitant]
     Dosage: 1000 MG, EACH EVENING
     Dates: end: 20070129
  5. GLYBURIDE [Concomitant]
     Indication: DIABETES MELLITUS
     Dosage: 5 MG, EACH MORNING
     Dates: end: 20070129
  6. GLYBURIDE [Concomitant]
     Dosage: 10 MG, EACH EVENING
     Dates: end: 20070129
  7. ACTOS [Concomitant]
     Indication: DIABETES MELLITUS
     Dosage: UNK, UNKNOWN
  8. NOVOLOG [Concomitant]
     Indication: DIABETES MELLITUS
     Dosage: 5 U, 3/D
  9. SIMVASTATIN [Concomitant]
     Indication: LIPIDS
     Dosage: 40 MG, DAILY (1/D)
  10. TRICOR [Concomitant]
     Indication: LIPIDS
     Dosage: UNK, UNKNOWN
  11. LOVAZA [Concomitant]
     Indication: LIPIDS
     Dosage: UNK, UNKNOWN
  12. OMACOR [Concomitant]
     Indication: LIPIDS
     Dosage: UNK, UNKNOWN
  13. FUROSEMIDE [Concomitant]
     Indication: OEDEMA
     Dosage: UNK, UNKNOWN
  14. METOPROLOL TARTRATE [Concomitant]
     Indication: BLOOD PRESSURE
     Dosage: UNK, UNKNOWN
  15. NORVASC [Concomitant]
     Dosage: 10 MG, DAILY (1/D)
  16. HYZAAR [Concomitant]
     Dosage: 1 D/F, DAILY (1/D)

REACTIONS (9)
  - CHOLELITHIASIS [None]
  - HEPATIC CIRRHOSIS [None]
  - HEPATOCELLULAR INJURY [None]
  - HEPATOMEGALY [None]
  - OFF LABEL USE [None]
  - PANCREATITIS ACUTE [None]
  - PANCREATITIS CHRONIC [None]
  - PYELONEPHRITIS [None]
  - SPLENOMEGALY [None]
